FAERS Safety Report 25190963 (Version 1)
Quarter: 2025Q2

REPORT INFORMATION
  Report Type: Spontaneous
  Country: JP (occurrence: JP)
  Receive Date: 20250411
  Receipt Date: 20250411
  Transmission Date: 20250717
  Serious: Yes (Other)
  Sender: MERCK SHARP AND DOHME
  Company Number: JP-MSD-M2024-37222

PATIENT
  Age: 8 Decade
  Sex: Male

DRUGS (4)
  1. KEYTRUDA [Suspect]
     Active Substance: PEMBROLIZUMAB
     Indication: Oesophageal carcinoma
     Route: 041
     Dates: start: 202408
  2. KEYTRUDA [Suspect]
     Active Substance: PEMBROLIZUMAB
     Indication: Oesophageal carcinoma
     Route: 041
     Dates: start: 202406, end: 202408
  3. CISPLATIN [Concomitant]
     Active Substance: CISPLATIN
     Dosage: DOSE DESCRIPTION : 60 MILLIGRAM/SQ. METER, Q3W?DAILY DOSE : 2.82 MILLIGRAM/SQ. METER
     Route: 041
     Dates: start: 202406, end: 202408
  4. FLUOROURACIL [Concomitant]
     Active Substance: FLUOROURACIL
     Route: 041
     Dates: start: 202406, end: 202408

REACTIONS (3)
  - Renal impairment [Not Recovered/Not Resolved]
  - Immune-mediated adrenal insufficiency [Recovered/Resolved]
  - Therapy partial responder [Unknown]

NARRATIVE: CASE EVENT DATE: 20240101
